FAERS Safety Report 24372730 (Version 2)
Quarter: 2024Q4

REPORT INFORMATION
  Report Type: Spontaneous
  Country: US (occurrence: US)
  Receive Date: 20240927
  Receipt Date: 20241028
  Transmission Date: 20250114
  Serious: Yes (Hospitalization)
  Sender: SAREPTA THERAPEUTICS
  Company Number: US-SAREPTA THERAPEUTICS INC.-SRP2024-005079

PATIENT
  Age: 21 Year
  Sex: Male
  Weight: 43.4 kg

DRUGS (10)
  1. VYONDYS 53 [Suspect]
     Active Substance: GOLODIRSEN
     Indication: Duchenne muscular dystrophy
     Dosage: 1500 MILLIGRAM, WEEKLY
     Route: 042
     Dates: start: 20220602
  2. LIDODERM [Concomitant]
     Active Substance: LIDOCAINE
     Indication: Back pain
     Dosage: 1 PATCH, QD
     Route: 061
     Dates: start: 20240708
  3. DESITIN [ZINC OXIDE] [Concomitant]
     Indication: Product used for unknown indication
     Dosage: 113 GRAM, Q4H
     Route: 061
     Dates: start: 20240116
  4. ENSURE COMPLETE [Concomitant]
     Indication: Product used for unknown indication
  5. ZOFRAN [Concomitant]
     Active Substance: ONDANSETRON HYDROCHLORIDE
     Indication: Product used for unknown indication
  6. CARVEDILOL [Concomitant]
     Active Substance: CARVEDILOL
     Indication: Product used for unknown indication
     Dosage: 3.125 MILLIGRAM
  7. CARVEDILOL [Concomitant]
     Active Substance: CARVEDILOL
     Dosage: 6.5 MILLIGRAM
     Dates: start: 202409
  8. FAMOTIDINE [Concomitant]
     Active Substance: FAMOTIDINE
     Indication: Product used for unknown indication
  9. LISINOPRIL [Concomitant]
     Active Substance: LISINOPRIL
     Indication: Left ventricular dysfunction
  10. LISINOPRIL [Concomitant]
     Active Substance: LISINOPRIL
     Indication: Duchenne muscular dystrophy

REACTIONS (4)
  - Pneumonia bacterial [Recovered/Resolved]
  - Respiratory tract infection viral [Recovered/Resolved]
  - Skin wound [Unknown]
  - Malnutrition [Unknown]

NARRATIVE: CASE EVENT DATE: 20240915
